FAERS Safety Report 21956600 (Version 2)
Quarter: 2023Q1

REPORT INFORMATION
  Report Type: Report from Study
  Country: US (occurrence: US)
  Receive Date: 20230206
  Receipt Date: 20230215
  Transmission Date: 20230418
  Serious: Yes (Hospitalization)
  Sender: FDA-Public Use
  Company Number: GE-UCBSA-2023005417

PATIENT
  Age: 30 Year
  Sex: Female

DRUGS (2)
  1. LACOSAMIDE [Suspect]
     Active Substance: LACOSAMIDE
     Indication: Seizure
     Dosage: 100 MILLIGRAM, 2X/DAY (BID)
  2. BRIVARACETAM [Suspect]
     Active Substance: BRIVARACETAM
     Indication: Product used for unknown indication
     Dosage: UNK

REACTIONS (2)
  - Seizure [Recovered/Resolved]
  - Brain operation [Recovered/Resolved]

NARRATIVE: CASE EVENT DATE: 20230114
